FAERS Safety Report 4962080-4 (Version None)
Quarter: 2006Q2

REPORT INFORMATION
  Report Type: 
  Country: None (occurrence: None)
  Receive Date: 20060403
  Receipt Date: 20060403
  Transmission Date: 20061013
  Serious: Yes (Hospitalization, Other)
  Sender: FDA-Public Use
  Company Number: None

PATIENT
  Sex: Female
  Weight: 65.1 kg

DRUGS (3)
  1. CYCLOPHOSPHAMIDE [Suspect]
     Indication: BREAST CANCER
     Dosage: 1020 MG
     Dates: start: 20060317, end: 20060317
  2. DOXORUBICIN HCL [Suspect]
     Dosage: 102 MG
     Dates: start: 20060317, end: 20060317
  3. PREVACID [Concomitant]

REACTIONS (6)
  - FLUSHING [None]
  - NEUTROPENIA [None]
  - NIGHT SWEATS [None]
  - PALPITATIONS [None]
  - PYREXIA [None]
  - TENDERNESS [None]
